FAERS Safety Report 23674592 (Version 1)
Quarter: 2024Q1

REPORT INFORMATION
  Report Type: Spontaneous
  Country: RO (occurrence: RO)
  Receive Date: 20240326
  Receipt Date: 20240326
  Transmission Date: 20240409
  Serious: Yes (Death, Life-Threatening, Hospitalization)
  Sender: FDA-Public Use
  Company Number: RO-ROMPHARMP-202403052

PATIENT
  Age: 35 Year
  Sex: Male

DRUGS (9)
  1. DEXAMETHASONE [Suspect]
     Active Substance: DEXAMETHASONE
     Indication: Plasmablastic lymphoma
     Dosage: HYPER-CVAD/MA CHEMOTHERAPY PROTOCOL
     Route: 065
     Dates: start: 2023
  2. DOXORUBICIN [Suspect]
     Active Substance: DOXORUBICIN
     Indication: Plasmablastic lymphoma
     Dosage: HYPER-CVAD/MA CHEMOTHERAPY PROTOCOL
     Route: 065
     Dates: start: 2023
  3. METHOTREXATE [Suspect]
     Active Substance: METHOTREXATE
     Indication: Plasmablastic lymphoma
     Dosage: HYPER-CVAD/MA CHEMOTHERAPY PROTOCOL
     Route: 065
     Dates: start: 2023
  4. CYTARABINE [Suspect]
     Active Substance: CYTARABINE
     Indication: Plasmablastic lymphoma
     Dosage: HYPER-CVAD/MA CHEMOTHERAPY PROTOCOL
     Route: 065
     Dates: start: 2023
  5. VINCRISTINE [Suspect]
     Active Substance: VINCRISTINE
     Indication: Plasmablastic lymphoma
     Dosage: HYPER-CVAD/MA CHEMOTHERAPY PROTOCOL
     Route: 065
     Dates: start: 2023
  6. CYCLOPHOSPHAMIDE [Suspect]
     Active Substance: CYCLOPHOSPHAMIDE
     Indication: Plasmablastic lymphoma
     Dosage: HYPER-CVAD/MA CHEMOTHERAPY PROTOCOL (HYPER-FRACTIONATED CYCLOPHOSPHAMIDE)
     Route: 065
     Dates: start: 2023
  7. BICTEGRAVIR\EMTRICITABINE\TENOFOVIR ALAFENAMIDE [Concomitant]
     Active Substance: BICTEGRAVIR\EMTRICITABINE\TENOFOVIR ALAFENAMIDE
     Indication: HIV infection CDC category C
     Dosage: 1CP/DAY
     Route: 065
     Dates: start: 202303
  8. GRANULOCYTE COLONY-STIMULATING FACTOR NOS [Concomitant]
     Active Substance: GRANULOCYTE COLONY-STIMULATING FACTOR NOS
     Indication: Prophylaxis
     Route: 065
     Dates: start: 2023
  9. CANNABIS SATIVA SUBSP. INDICA TOP [Concomitant]
     Active Substance: CANNABIS SATIVA SUBSP. INDICA TOP
     Indication: Substance use
     Route: 065
     Dates: start: 2023

REACTIONS (8)
  - Acute respiratory distress syndrome [Fatal]
  - Haemophagocytic lymphohistiocytosis [Unknown]
  - Disseminated intravascular coagulation [Unknown]
  - Conjunctival haemorrhage [Unknown]
  - Staphylococcal sepsis [Unknown]
  - Bone marrow failure [Unknown]
  - Gastroenteritis [Unknown]
  - Subcutaneous abscess [Unknown]

NARRATIVE: CASE EVENT DATE: 20230101
